FAERS Safety Report 11683423 (Version 1)
Quarter: 2015Q4

REPORT INFORMATION
  Report Type: Spontaneous
  Country: IT (occurrence: IT)
  Receive Date: 20151029
  Receipt Date: 20151029
  Transmission Date: 20160304
  Serious: Yes (Life-Threatening)
  Sender: FDA-Public Use
  Company Number: IT-FRESENIUS KABI-FK201505483

PATIENT
  Age: 40 Year
  Sex: Female
  Weight: 94 kg

DRUGS (24)
  1. CLEXANE [Concomitant]
     Active Substance: ENOXAPARIN SODIUM
  2. PARIET [Concomitant]
     Active Substance: RABEPRAZOLE SODIUM
  3. TAZOCIN [Concomitant]
     Active Substance: PIPERACILLIN SODIUM\TAZOBACTAM SODIUM
  4. TAVOR [Concomitant]
     Active Substance: LORAZEPAM
  5. VANCOMICINA [Concomitant]
     Active Substance: VANCOMYCIN
  6. FLUCONAZOLO [Concomitant]
  7. ZOFRAN [Concomitant]
     Active Substance: ONDANSETRON HYDROCHLORIDE
  8. INSULINA [Concomitant]
     Active Substance: INSULIN NOS
  9. LEVOFLOXACIN 5 MG/ML [Interacting]
     Active Substance: LEVOFLOXACIN
     Indication: PANCREATITIS HAEMORRHAGIC
     Route: 041
     Dates: start: 20150922, end: 20150923
  10. PARACETAMOL KABI 10MG/ML [Interacting]
     Active Substance: ACETAMINOPHEN
     Indication: ANALGESIC THERAPY
     Route: 065
     Dates: start: 20150828, end: 20151016
  11. ALBUMINA [Concomitant]
  12. LASIX [Concomitant]
     Active Substance: FUROSEMIDE
  13. ZANTAC [Concomitant]
     Active Substance: RANITIDINE HYDROCHLORIDE
  14. PANTOPRAZOLO [Concomitant]
     Active Substance: PANTOPRAZOLE SODIUM
  15. PEPTAMEN [Concomitant]
  16. NOVASOURCE DIABETIC [Concomitant]
  17. DICLOREUM [Interacting]
     Active Substance: DICLOFENAC SODIUM
     Indication: PYREXIA
     Route: 058
     Dates: start: 20150913, end: 20150922
  18. TORA-DOL [Suspect]
     Active Substance: KETOROLAC TROMETHAMINE
     Indication: ANALGESIC THERAPY
     Route: 065
     Dates: start: 20150920, end: 20150921
  19. MEPRAL [Concomitant]
     Active Substance: OMEPRAZOLE SODIUM
  20. TIGECICLINA [Concomitant]
  21. ALITRAQ [Concomitant]
  22. PLASIL [Concomitant]
     Active Substance: METOCLOPRAMIDE HYDROCHLORIDE
  23. NORVASC [Concomitant]
     Active Substance: AMLODIPINE BESYLATE
  24. MERREM [Concomitant]
     Active Substance: MEROPENEM

REACTIONS (3)
  - Dermatitis bullous [Unknown]
  - Erythema multiforme [Unknown]
  - Drug interaction [Unknown]

NARRATIVE: CASE EVENT DATE: 20151012
